FAERS Safety Report 6347983-0 (Version None)
Quarter: 2009Q3

REPORT INFORMATION
  Report Type: 
  Country: None (occurrence: None)
  Receive Date: 20090910
  Receipt Date: 20090831
  Transmission Date: 20100115
  Serious: Yes (Hospitalization, Disabling)
  Sender: FDA-Public Use
  Company Number: PL-BRISTOL-MYERS SQUIBB COMPANY-14391114

PATIENT
  Age: 71 Year
  Sex: Male

DRUGS (5)
  1. ABATACEPT [Suspect]
     Indication: COLITIS ULCERATIVE
     Dates: start: 20080916
  2. ENCORTON [Concomitant]
     Dates: start: 20050101
  3. ASAMAX [Concomitant]
     Dosage: 1DF=1 UNITS NOT SPECIFIED.
     Dates: start: 20080210
  4. ORTANOL [Concomitant]
     Dosage: 1 D.F= 1X0.02/DAY
     Dates: start: 20080110
  5. SIMVACOR [Concomitant]
     Dates: start: 20080610

REACTIONS (1)
  - COLITIS ULCERATIVE [None]
